FAERS Safety Report 4988355-0 (Version None)
Quarter: 2006Q2

REPORT INFORMATION
  Report Type: 
  Country: None (occurrence: None)
  Receive Date: 20060426
  Receipt Date: 20060417
  Transmission Date: 20061013
  Serious: No
  Sender: FDA-Public Use
  Company Number: TPA2006A00683

PATIENT

DRUGS (1)
  1. ROZEREM [Suspect]
     Dosage: SEE IMAGE
     Route: 048

REACTIONS (1)
  - UNEVALUABLE EVENT [None]
